FAERS Safety Report 22140867 (Version 1)
Quarter: 2023Q1

REPORT INFORMATION
  Report Type: Spontaneous
  Country: US (occurrence: None)
  Receive Date: 20230324
  Receipt Date: 20230324
  Transmission Date: 20230417
  Serious: Yes (Life-Threatening, Hospitalization, Disabling)
  Sender: FDA-Public Use
  Company Number: None

PATIENT
  Age: 49 Year
  Sex: Male
  Weight: 86.85 kg

DRUGS (5)
  1. TRULICITY [Suspect]
     Active Substance: DULAGLUTIDE
     Indication: Type 2 diabetes mellitus
     Dosage: FREQUENCY : WEEKLY;?
     Route: 058
     Dates: start: 20210518, end: 20220927
  2. Lisinopril 10 mg daily [Concomitant]
  3. Jardiance 25 mg daily [Concomitant]
  4. Insulin degludec 30 units daily [Concomitant]
  5. metformin 1000 mg BID [Concomitant]

REACTIONS (1)
  - Pancreatic carcinoma stage III [None]

NARRATIVE: CASE EVENT DATE: 20220713
